FAERS Safety Report 6010856-7 (Version None)
Quarter: 2008Q4

REPORT INFORMATION
  Report Type: 
  Country: None (occurrence: None)
  Receive Date: 20081218
  Receipt Date: 20081215
  Transmission Date: 20090506
  Serious: Yes (Other)
  Sender: FDA-Public Use
  Company Number: US-BAYER-200812572BCC

PATIENT
  Sex: Female
  Weight: 109 kg

DRUGS (16)
  1. BAYER 81 MG [Suspect]
     Indication: CARDIAC DISORDER
     Dosage: TOTAL DAILY DOSE: 81 MG  UNIT DOSE: 81 MG
     Route: 048
  2. DIOVAN [Concomitant]
  3. SYNTHROID [Concomitant]
  4. CYMBALTA [Concomitant]
  5. NORVASC [Concomitant]
  6. KDUR [Concomitant]
  7. VYTORIN [Concomitant]
  8. METOPROLOL [Concomitant]
     Dosage: TOTAL DAILY DOSE: 50 MG  UNIT DOSE: 25 MG
  9. ISOSORBIDE [Concomitant]
  10. PLAVIX [Concomitant]
  11. PREVACID [Concomitant]
  12. REQUIP [Concomitant]
     Dosage: TOTAL DAILY DOSE: 6 MG  UNIT DOSE: 3 MG
  13. AMBIEN CR [Concomitant]
     Dosage: TOTAL DAILY DOSE: 12.5 MG
  14. CATAPRES [Concomitant]
     Route: 062
  15. ADVAIR DISKUS 500/50 [Concomitant]
  16. TYLEOL WITH CODEINE #4 [Concomitant]

REACTIONS (1)
  - CONTUSION [None]
